FAERS Safety Report 25081162 (Version 1)
Quarter: 2025Q1

REPORT INFORMATION
  Report Type: Other
  Country: US (occurrence: US)
  Receive Date: 20250315
  Receipt Date: 20250315
  Transmission Date: 20250408
  Serious: Yes (Hospitalization, Other)
  Sender: B BRAUN
  Company Number: US-B.Braun Medical Inc.-2172939

PATIENT
  Age: 60 Year
  Sex: Male

DRUGS (4)
  1. CEFTRIAXONE SODIUM [Suspect]
     Active Substance: CEFTRIAXONE SODIUM
     Indication: Infection
  2. AZITHROMYCIN [Suspect]
     Active Substance: AZITHROMYCIN
  3. TOBRAMYCIN [Suspect]
     Active Substance: TOBRAMYCIN
  4. AMPICILLIN [Suspect]
     Active Substance: AMPICILLIN

REACTIONS (2)
  - Acquired factor V deficiency [Recovering/Resolving]
  - Vitamin K deficiency [Recovering/Resolving]
